FAERS Safety Report 8087074-4 (Version None)
Quarter: 2012Q1

REPORT INFORMATION
  Report Type: 
  Country: None (occurrence: None)
  Receive Date: 20120128
  Receipt Date: 20110523
  Transmission Date: 20120608
  Serious: No
  Sender: FDA-Public Use
  Company Number: US-ABBOTT-11P-163-0727735-00

PATIENT
  Age: 66 Year
  Sex: Female

DRUGS (5)
  1. PRILOSEC [Concomitant]
     Indication: PRODUCT USED FOR UNKNOWN INDICATION
     Dosage: TWICE A WEEK
  2. CYCLOSPORINE [Concomitant]
     Indication: PRODUCT USED FOR UNKNOWN INDICATION
     Dosage: 1 CAP DAILY
  3. HUMIRA [Suspect]
     Indication: PSORIASIS
     Dates: start: 20080401
  4. CALCIUM [Concomitant]
     Indication: PRODUCT USED FOR UNKNOWN INDICATION
     Dosage: 1 TABLET DAILY
  5. GLUCOSAMINE CHONDROITIN [Concomitant]
     Indication: PRODUCT USED FOR UNKNOWN INDICATION
     Dosage: 1 TABLET DAILY

REACTIONS (2)
  - PAIN IN EXTREMITY [None]
  - SKIN HAEMORRHAGE [None]
